FAERS Safety Report 12681902 (Version 3)
Quarter: 2017Q2

REPORT INFORMATION
  Report Type: Report from Study
  Country: US (occurrence: US)
  Receive Date: 20160824
  Receipt Date: 20170515
  Transmission Date: 20170830
  Serious: Yes (Death, Hospitalization)
  Sender: FDA-Public Use
  Company Number: US-ACTELION-A-US2016-140982

PATIENT
  Age: 54 Year
  Sex: Male
  Weight: 72.11 kg

DRUGS (2)
  1. TRACLEER [Suspect]
     Active Substance: BOSENTAN
     Indication: PULMONARY HYPERTENSION
     Dosage: 125 MG, BID
     Route: 048
     Dates: start: 20081030, end: 20170423
  2. ELIQUIS [Concomitant]
     Active Substance: APIXABAN

REACTIONS (4)
  - Pain [Unknown]
  - Multiple organ dysfunction syndrome [Fatal]
  - Cardiac arrest [Fatal]
  - Sickle cell anaemia [Unknown]
